FAERS Safety Report 8757321 (Version 1)
Quarter: 2012Q4

REPORT INFORMATION
  Report Type: 
  Country: US (occurrence: US)
  Receive Date: 20120828
  Receipt Date: 20120828
  Transmission Date: 20130627
  Serious: Yes (Hospitalization)
  Sender: FDA-Public Use
  Company Number: US-BAYER-2012-087268

PATIENT
  Age: 30 Year
  Sex: Female

DRUGS (5)
  1. YAZ [Suspect]
  2. YASMIN [Suspect]
  3. SYNTHROID [Concomitant]
     Dosage: 75 ?g, UNK
     Dates: start: 20000315, end: 20040502
  4. NORVASC [Concomitant]
     Dosage: 5 mg, UNK
     Dates: start: 20000929, end: 20040416
  5. ACCUPRIL [Concomitant]
     Dosage: 10 mg, 20 mg
     Dates: start: 20010208, end: 20040517

REACTIONS (2)
  - Subclavian vein thrombosis [Recovered/Resolved]
  - Axillary vein thrombosis [Recovered/Resolved]
